FAERS Safety Report 9682605 (Version 1)
Quarter: 2013Q4

REPORT INFORMATION
  Report Type: Spontaneous
  Country: DE (occurrence: DE)
  Receive Date: 20131017
  Receipt Date: 20131017
  Transmission Date: 20140711
  Serious: Yes (Congenital Anomaly, Other)
  Sender: FDA-Public Use
  Company Number: DE-DRREDDYS-GER/GER/13/0034954

PATIENT
  Age: 1 Day
  Sex: Male
  Weight: 3.4 kg

DRUGS (4)
  1. LAMOTRIGINE [Suspect]
     Indication: PRODUCT USED FOR UNKNOWN INDICATION
     Route: 064
  2. ANTELEPSIN [Suspect]
     Indication: PRODUCT USED FOR UNKNOWN INDICATION
     Route: 064
  3. FOLIO [Concomitant]
     Indication: PRODUCT USED FOR UNKNOWN INDICATION
     Route: 064
  4. PARACETAMOL [Concomitant]
     Indication: PRODUCT USED FOR UNKNOWN INDICATION
     Route: 064

REACTIONS (5)
  - Cleft lip and palate [Unknown]
  - Atrial septal defect [Unknown]
  - Patent ductus arteriosus [Unknown]
  - Blood count abnormal [Unknown]
  - Foetal exposure during pregnancy [Unknown]
